FAERS Safety Report 15154921 (Version 1)
Quarter: 2018Q3

REPORT INFORMATION
  Report Type: Spontaneous
  Country: US (occurrence: US)
  Receive Date: 20180620
  Receipt Date: 20180620
  Transmission Date: 20181010
  Serious: Yes (Hospitalization)
  Sender: FDA-Public Use
  Company Number: None

PATIENT
  Age: 46 Year
  Sex: Male
  Weight: 204 kg

DRUGS (1)
  1. OSELTAMIVIR [Suspect]
     Active Substance: OSELTAMIVIR
     Indication: UPPER RESPIRATORY TRACT INFECTION
     Route: 048
     Dates: start: 20180329, end: 20180331

REACTIONS (15)
  - Pharyngeal oedema [None]
  - Influenza like illness [None]
  - Rhinorrhoea [None]
  - Oropharyngeal pain [None]
  - Throat irritation [None]
  - Pyrexia [None]
  - Throat tightness [None]
  - Angioedema [None]
  - Cough [None]
  - Myalgia [None]
  - Headache [None]
  - Fatigue [None]
  - Dysphagia [None]
  - Dysphonia [None]
  - Chills [None]

NARRATIVE: CASE EVENT DATE: 20180331
